FAERS Safety Report 19590667 (Version 1)
Quarter: 2021Q3

REPORT INFORMATION
  Report Type: Spontaneous
  Country: US (occurrence: US)
  Receive Date: 20210721
  Receipt Date: 20210721
  Transmission Date: 20211014
  Serious: Yes (Hospitalization)
  Sender: FDA-Public Use
  Company Number: US-PFIZER INC-2021855891

PATIENT
  Age: 60 Year
  Sex: Female
  Weight: 119.75 kg

DRUGS (2)
  1. LEVOTHYROXINE SODIUM. [Suspect]
     Active Substance: LEVOTHYROXINE SODIUM
     Dosage: UNK
  2. SYNTHROID [Suspect]
     Active Substance: LEVOTHYROXINE SODIUM
     Dosage: 1MG, THREE TIMES A DAY

REACTIONS (4)
  - Drug ineffective [Unknown]
  - Hypothyroidism [Unknown]
  - Coma [Unknown]
  - Condition aggravated [Unknown]
